FAERS Safety Report 20580139 (Version 1)
Quarter: 2022Q1

REPORT INFORMATION
  Report Type: Spontaneous
  Country: US (occurrence: US)
  Receive Date: 20220310
  Receipt Date: 20220310
  Transmission Date: 20220424
  Serious: No
  Sender: FDA-Public Use
  Company Number: US-009507513-2203USA001783

PATIENT
  Age: 62 Year
  Sex: Male

DRUGS (3)
  1. TEMODAR [Suspect]
     Active Substance: TEMOZOLOMIDE
     Indication: Glioblastoma
     Dosage: 75 MG/M2, 7 DAYS/WEEK
  2. TEMODAR [Suspect]
     Active Substance: TEMOZOLOMIDE
     Dosage: 150 MG/M2 FOR THE FIRST CYCLE, 5 DAYS EVERY 28 DAYS, UP TO 12 CYCLES.
  3. TEMODAR [Suspect]
     Active Substance: TEMOZOLOMIDE
     Dosage: 200 MG/M2 FOR THE SECOND CYCLE, 5 DAYS EVERY 28 DAYS, UP TO 12 CYCLES.

REACTIONS (1)
  - Incorrect product administration duration [Unknown]
